FAERS Safety Report 18788705 (Version 2)
Quarter: 2021Q1

REPORT INFORMATION
  Report Type: Spontaneous
  Country: SE (occurrence: SE)
  Receive Date: 20210126
  Receipt Date: 20210305
  Transmission Date: 20210419
  Serious: Yes (Disabling, Other)
  Sender: FDA-Public Use
  Company Number: SE-BAYER-2021-028697

PATIENT
  Age: 37 Year
  Sex: Female

DRUGS (1)
  1. KYLEENA [Suspect]
     Active Substance: LEVONORGESTREL
     Indication: CONTRACEPTION
     Dosage: 17.5 ?G PER DAY, CONTINUOUSLY
     Route: 015
     Dates: start: 20200201, end: 20201226

REACTIONS (4)
  - Drug ineffective [Recovered/Resolved with Sequelae]
  - Shock haemorrhagic [Recovered/Resolved with Sequelae]
  - Blood loss anaemia [Recovered/Resolved]
  - Ectopic pregnancy with contraceptive device [Recovered/Resolved with Sequelae]

NARRATIVE: CASE EVENT DATE: 20201226
